FAERS Safety Report 8437284-9 (Version None)
Quarter: 2012Q2

REPORT INFORMATION
  Report Type: 
  Country: None (occurrence: None)
  Receive Date: 20120614
  Receipt Date: 20120305
  Transmission Date: 20120825
  Serious: No
  Sender: FDA-Public Use
  Company Number: US-AMGEN-USASP2012010963

PATIENT
  Age: 90 Year
  Sex: Female
  Weight: 46 kg

DRUGS (10)
  1. PROLIA [Suspect]
     Indication: OSTEOPOROSIS POSTMENOPAUSAL
     Dosage: 60 MG, Q6MO
     Route: 058
     Dates: start: 20111205, end: 20111209
  2. PREDNISONE TAB [Concomitant]
     Dosage: 1 MG, QD
  3. VITAMIN D [Concomitant]
     Dosage: 1000 IU, QD
  4. CELEBREX [Concomitant]
     Dosage: 200 MG, QD
  5. SPIRONOLACTONE [Concomitant]
     Dosage: 25 MG, QD
  6. ASPIRIN [Concomitant]
     Dosage: 81 MG, QD
  7. NORVASC [Concomitant]
     Dosage: UNK UNK, QD
  8. LISINOPRIL [Concomitant]
     Dosage: UNK UNK, QD
  9. MULTI-VITAMIN [Concomitant]
  10. ZYRTEC [Concomitant]
     Dosage: 10 MG, QD

REACTIONS (3)
  - EXFOLIATIVE RASH [None]
  - RASH VESICULAR [None]
  - RASH PRURITIC [None]
